FAERS Safety Report 21950970 (Version 1)
Quarter: 2023Q1

REPORT INFORMATION
  Report Type: Spontaneous
  Country: US (occurrence: US)
  Receive Date: 20230203
  Receipt Date: 20230203
  Transmission Date: 20230418
  Serious: Yes (Hospitalization)
  Sender: FDA-Public Use
  Company Number: US-CTI BIOPHARMA-2022US02952

PATIENT

DRUGS (1)
  1. VONJO [Suspect]
     Active Substance: PACRITINIB
     Indication: Myeloproliferative neoplasm
     Dosage: 100 MILLIGRAM, BID
     Route: 048
     Dates: start: 20220629

REACTIONS (4)
  - Adverse event [Unknown]
  - Transfusion [Unknown]
  - Product dose omission issue [Unknown]
  - Decreased activity [Unknown]

NARRATIVE: CASE EVENT DATE: 20220701
